FAERS Safety Report 4325406-0 (Version None)
Quarter: 2004Q1

REPORT INFORMATION
  Report Type: 
  Country: None (occurrence: None)
  Receive Date: 20040324
  Receipt Date: 20040310
  Transmission Date: 20041129
  Serious: Yes (Death, Hospitalization)
  Sender: FDA-Public Use
  Company Number: US-SHR-04-019507

PATIENT
  Age: 49 Year
  Sex: Female
  Weight: 60.3 kg

DRUGS (7)
  1. CAMPATH [Suspect]
     Indication: NON-HODGKIN'S LYMPHOMA RECURRENT
     Dosage: 3/10/30 MG, INTRAVENOUS
     Route: 042
     Dates: start: 20031205, end: 20031209
  2. ALTACE [Concomitant]
  3. COREG [Concomitant]
  4. HYDROCHLOROTHIAZIDE [Concomitant]
  5. ALLOPURINOL [Concomitant]
  6. BACTRIM DS [Concomitant]
  7. FAMVIR [Concomitant]

REACTIONS (23)
  - ANXIETY [None]
  - ASTHENIA [None]
  - BODY TEMPERATURE DECREASED [None]
  - COLD SWEAT [None]
  - DIALYSIS [None]
  - DYSGEUSIA [None]
  - FEELING ABNORMAL [None]
  - HYPERHIDROSIS [None]
  - HYPERVOLAEMIA [None]
  - HYPOGLYCAEMIA [None]
  - HYPONATRAEMIA [None]
  - HYPOTENSION [None]
  - JAUNDICE CHOLESTATIC [None]
  - LOSS OF CONSCIOUSNESS [None]
  - MALIGNANT NEOPLASM PROGRESSION [None]
  - MULTI-ORGAN FAILURE [None]
  - NON-HODGKIN'S LYMPHOMA [None]
  - OEDEMA PERIPHERAL [None]
  - PULMONARY EMBOLISM [None]
  - RENAL FAILURE ACUTE [None]
  - RESPIRATORY FAILURE [None]
  - SEPSIS [None]
  - TACHYCARDIA [None]
